FAERS Safety Report 4937040-X (Version None)
Quarter: 2006Q1

REPORT INFORMATION
  Report Type: 
  Country: None (occurrence: None)
  Receive Date: 20060309
  Receipt Date: 20060302
  Transmission Date: 20060701
  Serious: Yes (Hospitalization, Other)
  Sender: FDA-Public Use
  Company Number: GB-JNJFOC-20040800667

PATIENT
  Sex: Female
  Weight: 60 kg

DRUGS (6)
  1. REMICADE [Suspect]
     Indication: RHEUMATOID ARTHRITIS
     Dosage: 3MG/KG
     Route: 042
  2. METHOTREXATE [Concomitant]
  3. ALENDRONATE SODIUM [Concomitant]
     Route: 065
  4. GAVISCON [Concomitant]
     Route: 065
  5. GAVISCON [Concomitant]
     Route: 065
  6. GLUCOSAMINE [Concomitant]
     Route: 065

REACTIONS (8)
  - CONVULSION [None]
  - FEMUR FRACTURE [None]
  - JOINT INJURY [None]
  - LOSS OF CONSCIOUSNESS [None]
  - MENINGITIS TUBERCULOUS [None]
  - PERICARDIAL EFFUSION [None]
  - RESPIRATORY FAILURE [None]
  - UPPER LIMB FRACTURE [None]
